FAERS Safety Report 6716953-2 (Version None)
Quarter: 2010Q2

REPORT INFORMATION
  Report Type: 
  Country: None (occurrence: None)
  Receive Date: 20100510
  Receipt Date: 20100510
  Transmission Date: 20101027
  Serious: Yes (Other)
  Sender: FDA-Public Use
  Company Number: None

PATIENT
  Age: 9 Month
  Sex: Male
  Weight: 9.0719 kg

DRUGS (1)
  1. TYLENOL INFANT DROPS 80 MG TYLENOL [Suspect]
     Indication: TEETHING
     Dosage: .8 ML 1 EVERY 6-8 HOURS PO
     Route: 048
     Dates: start: 20100501, end: 20100503

REACTIONS (5)
  - DIARRHOEA [None]
  - MALAISE [None]
  - PAIN [None]
  - PRODUCT QUALITY ISSUE [None]
  - PYREXIA [None]
